FAERS Safety Report 10040252 (Version 2)
Quarter: 2014Q1

REPORT INFORMATION
  Report Type: Spontaneous
  Country: US (occurrence: US)
  Receive Date: 20140327
  Receipt Date: 20140330
  Transmission Date: 20141002
  Serious: No
  Sender: FDA-Public Use
  Company Number: US-009507513-1403USA004896

PATIENT
  Age: 67 Year
  Sex: Female

DRUGS (2)
  1. DULERA [Suspect]
     Indication: ASTHMA
     Dosage: TWO PUFFS PER DAY
     Route: 055
     Dates: start: 2013, end: 2014
  2. DULERA [Suspect]
     Indication: ASTHMA
     Dosage: TWO PUFFS PER DAY
     Route: 055
     Dates: start: 2014

REACTIONS (8)
  - Nasal congestion [Unknown]
  - Feeling jittery [Unknown]
  - Nervousness [Unknown]
  - Abdominal discomfort [Unknown]
  - Dysphonia [Unknown]
  - Nasal discomfort [Unknown]
  - Drug dose omission [Unknown]
  - Oropharyngeal discomfort [Unknown]
